FAERS Safety Report 23054734 (Version 1)
Quarter: 2023Q4

REPORT INFORMATION
  Report Type: Spontaneous
  Country: US (occurrence: US)
  Receive Date: 20231011
  Receipt Date: 20231011
  Transmission Date: 20240110
  Serious: No
  Sender: FDA-Public Use
  Company Number: US-ALKERMES INC.-ALK-2023-003931

PATIENT
  Age: 29 Year
  Sex: Female

DRUGS (3)
  1. LYBALVI [Suspect]
     Active Substance: OLANZAPINE\SAMIDORPHAN L-MALATE
     Indication: Bipolar I disorder
     Dosage: 5/10 MILLIGRAM, QD
     Route: 048
     Dates: start: 20230927
  2. LYBALVI [Suspect]
     Active Substance: OLANZAPINE\SAMIDORPHAN L-MALATE
     Dosage: 15/10 MILLIGRAM, QD
     Route: 048
     Dates: start: 20230918
  3. OLANZAPINE [Suspect]
     Active Substance: OLANZAPINE
     Indication: Bipolar I disorder
     Dosage: 25 MILLIGRAM, QD
     Route: 048
     Dates: start: 20230918

REACTIONS (2)
  - Accidental overdose [Unknown]
  - Heart rate increased [Unknown]

NARRATIVE: CASE EVENT DATE: 20230918
